FAERS Safety Report 8866492 (Version 2)
Quarter: 2013Q2

REPORT INFORMATION
  Report Type: Spontaneous
  Country: BR (occurrence: BR)
  Receive Date: 20121025
  Receipt Date: 20130527
  Transmission Date: 20140414
  Serious: Yes (Hospitalization)
  Sender: FDA-Public Use
  Company Number: BR-BRISTOL-MYERS SQUIBB COMPANY-17053539

PATIENT
  Age: 52 Year
  Sex: Female

DRUGS (2)
  1. ONGLYZA TABS 5 MG [Suspect]
     Indication: DIABETES MELLITUS
     Dosage: 2 MONTHS AGO.
  2. DIAMICRON [Concomitant]

REACTIONS (1)
  - Renal failure [Unknown]
